FAERS Safety Report 4809878-0 (Version None)
Quarter: 2005Q4

REPORT INFORMATION
  Report Type: 
  Country: None (occurrence: None)
  Receive Date: 20051024
  Receipt Date: 20051013
  Transmission Date: 20060501
  Serious: Yes (Life-Threatening, Hospitalization, Disabling, Other)
  Sender: FDA-Public Use
  Company Number: 2005089381

PATIENT
  Age: 35 Year
  Sex: Female
  Weight: 65.7716 kg

DRUGS (10)
  1. BEXTRA [Suspect]
     Indication: ARTHRALGIA
     Dosage: (1 IN 1 D), ORAL
     Route: 048
     Dates: end: 20050606
  2. CELEBREX [Suspect]
     Indication: ARTHRALGIA
     Dosage: SEE IMAGE, ORAL
     Route: 048
     Dates: start: 20050914
  3. CELEBREX [Suspect]
     Indication: ARTHRALGIA
     Dosage: SEE IMAGE, ORAL
     Route: 048
     Dates: start: 20050914
  4. DAYPRO [Suspect]
     Indication: ARTHRITIS
     Dosage: ORAL
     Route: 048
     Dates: start: 20050101, end: 20050101
  5. PREVACID [Concomitant]
  6. LEXAPRO [Concomitant]
  7. XANAX [Concomitant]
  8. AMBIEN [Concomitant]
  9. ATENOLOL [Concomitant]
  10. CELEBREX [Concomitant]

REACTIONS (34)
  - ABDOMINAL ADHESIONS [None]
  - BLISTER [None]
  - CARDIAC DISORDER [None]
  - CHOLECYSTECTOMY [None]
  - CONDITION AGGRAVATED [None]
  - CROHN'S DISEASE [None]
  - DIAPHRAGMATIC DISORDER [None]
  - DRUG INEFFECTIVE [None]
  - ECONOMIC PROBLEM [None]
  - FOOT OPERATION [None]
  - GASTRIC DISORDER [None]
  - HAEMORRHAGE [None]
  - HERNIA REPAIR [None]
  - HYPERSENSITIVITY [None]
  - IMPETIGO [None]
  - INGROWING NAIL [None]
  - KIDNEY INFECTION [None]
  - MULTI-ORGAN FAILURE [None]
  - MUSCLE SPASMS [None]
  - NAIL DISORDER [None]
  - OEDEMA PERIPHERAL [None]
  - OESOPHAGEAL DILATION PROCEDURE [None]
  - OSTEOPOROSIS [None]
  - PROCEDURAL COMPLICATION [None]
  - RASH [None]
  - RASH GENERALISED [None]
  - RASH PAPULAR [None]
  - SCAB [None]
  - SCAR [None]
  - SKIN EXFOLIATION [None]
  - SKIN INFECTION [None]
  - SOMNOLENCE [None]
  - SPINAL OSTEOARTHRITIS [None]
  - URTICARIA [None]
